FAERS Safety Report 9404318 (Version 3)
Quarter: 2014Q1

REPORT INFORMATION
  Report Type: Report from Study
  Country: CA (occurrence: CA)
  Receive Date: 20130717
  Receipt Date: 20140203
  Transmission Date: 20141002
  Serious: Yes (Death, Hospitalization, Other)
  Sender: FDA-Public Use
  Company Number: CA-UCBSA-091417

PATIENT
  Age: 78 Year
  Sex: Male
  Weight: 81.6 kg

DRUGS (2)
  1. CIMZIA [Suspect]
     Indication: RHEUMATOID ARTHRITIS
     Route: 058
     Dates: start: 20130326, end: 201308
  2. CIMZIA [Suspect]
     Indication: RHEUMATOID ARTHRITIS
     Route: 058
     Dates: start: 20130212, end: 201303

REACTIONS (4)
  - Cerebrovascular accident [Fatal]
  - Lung infection [Recovered/Resolved]
  - Pneumonia [Unknown]
  - Drug ineffective [Recovered/Resolved]
